FAERS Safety Report 13448730 (Version 1)
Quarter: 2017Q2

REPORT INFORMATION
  Report Type: Spontaneous
  Country: US (occurrence: US)
  Receive Date: 20170417
  Receipt Date: 20170417
  Transmission Date: 20170830
  Serious: Yes (Life-Threatening, Hospitalization)
  Sender: FDA-Public Use
  Company Number: US-BAYER-2017-068507

PATIENT
  Age: 76 Year
  Sex: Male

DRUGS (5)
  1. PRASUGREL. [Interacting]
     Active Substance: PRASUGREL
     Dosage: UNK
  2. HEPARIN [Interacting]
     Active Substance: HEPARIN SODIUM
     Dosage: 12000 U, UNK
  3. ACETYLSALICYLIC ACID({=100 MG) [Suspect]
     Active Substance: ASPIRIN
  4. CLOPIDOGREL [Interacting]
     Active Substance: CLOPIDOGREL BISULFATE
     Dosage: 75 MG, UNK
  5. CLOPIDOGREL [Interacting]
     Active Substance: CLOPIDOGREL BISULFATE
     Dosage: 300 MG, UNK

REACTIONS (6)
  - Acute right ventricular failure [Recovered/Resolved]
  - Drug administration error [Recovered/Resolved]
  - Hepatic function abnormal [Recovered/Resolved]
  - Labelled drug-drug interaction medication error [Recovered/Resolved]
  - Myocardial haemorrhage [Recovered/Resolved]
  - Urine output decreased [Recovered/Resolved]
